FAERS Safety Report 4732536-8 (Version None)
Quarter: 2005Q3

REPORT INFORMATION
  Report Type: 
  Country: None (occurrence: None)
  Receive Date: 20050803
  Receipt Date: 20050721
  Transmission Date: 20060218
  Serious: Yes (Other)
  Sender: FDA-Public Use
  Company Number: JP-GLAXOSMITHKLINE-B0388289A

PATIENT
  Sex: Female

DRUGS (3)
  1. RANITIDINE [Suspect]
     Indication: DRUG USE FOR UNKNOWN INDICATION
     Route: 065
  2. TAXOL [Concomitant]
     Indication: OVARIAN CANCER
     Route: 042
  3. CARBOPLATIN [Concomitant]
     Indication: OVARIAN CANCER
     Route: 042

REACTIONS (1)
  - ANAPHYLACTIC SHOCK [None]
